FAERS Safety Report 5388936-9 (Version None)
Quarter: 2007Q3

REPORT INFORMATION
  Report Type: 
  Country: None (occurrence: None)
  Receive Date: 20070717
  Receipt Date: 20070710
  Transmission Date: 20080115
  Serious: Yes (Hospitalization)
  Sender: FDA-Public Use
  Company Number: PHBS2007SK10742

PATIENT
  Age: 77 Year
  Sex: Female

DRUGS (8)
  1. TRILEPTAL [Suspect]
     Dosage: 300 MG, BID
     Route: 048
  2. LUCETAM [Concomitant]
     Dosage: 1200 MG/DAY
     Route: 048
  3. ANOPYRIN [Concomitant]
     Dosage: 100 MG/DAY
     Route: 048
  4. CAVINTON [Concomitant]
     Dosage: 1 DF, TID
     Route: 048
  5. BISMORAL [Concomitant]
     Dosage: 1 DF, Q12H
     Route: 048
  6. ENALAPRIL MALEATE [Concomitant]
     Dosage: 5 MG/DAY
     Route: 065
  7. MODURETIC 5-50 [Concomitant]
     Dosage: 1 TABLET EVERY OTHER DAY
     Route: 048
  8. CONCOR [Concomitant]
     Dosage: 5 MG/DAY
     Route: 065

REACTIONS (14)
  - ANOREXIA [None]
  - APATHY [None]
  - BLOOD CREATININE INCREASED [None]
  - BLOOD LACTATE DEHYDROGENASE INCREASED [None]
  - BLOOD SODIUM DECREASED [None]
  - BLOOD UREA INCREASED [None]
  - CONFUSIONAL STATE [None]
  - DYSARTHRIA [None]
  - DYSPEPSIA [None]
  - HEADACHE [None]
  - INAPPROPRIATE ANTIDIURETIC HORMONE SECRETION [None]
  - NAUSEA [None]
  - SOMNOLENCE [None]
  - VERTIGO [None]
